FAERS Safety Report 7298448-3 (Version None)
Quarter: 2011Q1

REPORT INFORMATION
  Report Type: 
  Country: None (occurrence: None)
  Receive Date: 20110217
  Receipt Date: 20110202
  Transmission Date: 20110831
  Serious: Yes (Other)
  Sender: FDA-Public Use
  Company Number: US-BAYER-2011-013489

PATIENT
  Sex: Female

DRUGS (1)
  1. INTERFERON BETA-1B [Suspect]
     Dosage: UNK
     Dates: start: 20060101

REACTIONS (4)
  - INJECTION SITE ERYTHEMA [None]
  - STAPHYLOCOCCAL INFECTION [None]
  - INJECTION SITE SCAB [None]
  - INJECTION SITE DISCOLOURATION [None]
